FAERS Safety Report 6427400-2 (Version None)
Quarter: 2009Q4

REPORT INFORMATION
  Report Type: 
  Country: None (occurrence: None)
  Receive Date: 20091104
  Receipt Date: 20091023
  Transmission Date: 20100525
  Serious: Yes (Hospitalization, Other)
  Sender: FDA-Public Use
  Company Number: CH-PFIZER INC-2009287533

PATIENT
  Age: 78 Year
  Sex: Male

DRUGS (9)
  1. NEURONTIN [Suspect]
     Indication: HERPES ZOSTER
     Dosage: UNK
     Route: 048
     Dates: start: 20090801, end: 20090828
  2. TEGRETOL [Suspect]
     Dosage: 200 MG, 2X/DAY
     Route: 048
     Dates: start: 20090915, end: 20090930
  3. MUTAGRIP [Suspect]
     Dosage: 1 DF, UNK
     Dates: start: 20090925
  4. LYRICA [Concomitant]
     Indication: HERPES ZOSTER
     Dosage: UNK
     Dates: start: 20090812, end: 20090824
  5. LYRICA [Concomitant]
     Dosage: 150 MG, 2X/DAY
  6. ASPIRIN [Concomitant]
     Dosage: 100 MG, 1X/DAY
     Route: 048
  7. TORASEMIDE [Concomitant]
     Dosage: 5 MG, 1X/DAY
     Route: 048
     Dates: start: 20090902
  8. DAFALGAN [Concomitant]
     Dosage: 500 MG, 3X/DAY
     Route: 048
     Dates: start: 20090828
  9. CORDARONE [Concomitant]
     Dosage: 100 MG, 1X/DAY
     Route: 048
     Dates: start: 20070101

REACTIONS (3)
  - CONFUSIONAL STATE [None]
  - DERMATITIS EXFOLIATIVE [None]
  - SOMNOLENCE [None]
